FAERS Safety Report 18234149 (Version 2)
Quarter: 2021Q1

REPORT INFORMATION
  Report Type: Spontaneous
  Country: US (occurrence: US)
  Receive Date: 20200904
  Receipt Date: 20210201
  Transmission Date: 20210419
  Serious: Yes (Other)
  Sender: FDA-Public Use
  Company Number: US-ABBVIE-20K-163-3553664-00

PATIENT
  Sex: Male
  Weight: 107.6 kg

DRUGS (1)
  1. HUMIRA [Suspect]
     Active Substance: ADALIMUMAB
     Indication: RHEUMATOID ARTHRITIS
     Route: 058
     Dates: start: 2012

REACTIONS (4)
  - Chronic lymphocytic leukaemia [Not Recovered/Not Resolved]
  - Skin cancer [Unknown]
  - T-cell chronic lymphocytic leukaemia [Not Recovered/Not Resolved]
  - Sarcoma [Not Recovered/Not Resolved]

NARRATIVE: CASE EVENT DATE: 2017
